FAERS Safety Report 16420433 (Version 1)
Quarter: 2019Q2

REPORT INFORMATION
  Report Type: Spontaneous
  Country: US (occurrence: US)
  Receive Date: 20190506
  Receipt Date: 20190506
  Transmission Date: 20190711
  Serious: Yes (Hospitalization)
  Sender: FDA-Public Use
  Company Number: None

PATIENT
  Age: 70 Year
  Sex: Female
  Weight: 111 kg

DRUGS (1)
  1. APIXABAN, 2.5 MG OR 5MG [Suspect]
     Active Substance: APIXABAN
     Indication: DEEP VEIN THROMBOSIS
     Dosage: 2.5 MG OR 5 MG TWICE DAILY ORAL
     Route: 048
     Dates: start: 20180904, end: 20190429

REACTIONS (2)
  - Small intestinal obstruction [None]
  - Pleural effusion [None]

NARRATIVE: CASE EVENT DATE: 20190429
